FAERS Safety Report 7418907-X (Version None)
Quarter: 2011Q2

REPORT INFORMATION
  Report Type: 
  Country: None (occurrence: None)
  Receive Date: 20110415
  Receipt Date: 20110404
  Transmission Date: 20111010
  Serious: Yes (Hospitalization, Other)
  Sender: FDA-Public Use
  Company Number: FR-ELI_LILLY_AND_COMPANY-FR201104000971

PATIENT
  Sex: Male

DRUGS (4)
  1. ZYPREXA [Suspect]
     Dosage: 10 MG, QD
     Route: 048
     Dates: end: 20101207
  2. TERALHITE [Concomitant]
     Dosage: 1.5 DF, QD
     Route: 048
  3. MEPRONIZINE [Concomitant]
     Dosage: 2 DF, QD
     Route: 048
  4. TERCIAN [Concomitant]
     Dosage: 60 DF, QD
     Route: 048

REACTIONS (2)
  - CEREBRAL INFARCTION [None]
  - ENDOCARDITIS ENTEROCOCCAL [None]
